FAERS Safety Report 23140634 (Version 1)
Quarter: 2023Q4

REPORT INFORMATION
  Report Type: Spontaneous
  Country: US (occurrence: US)
  Receive Date: 20231103
  Receipt Date: 20231103
  Transmission Date: 20240110
  Serious: Yes (Other)
  Sender: FDA-Public Use
  Company Number: US-BRISTOL-MYERS SQUIBB COMPANY-2023-156940

PATIENT
  Age: 67 Year
  Sex: Male

DRUGS (2)
  1. ELIQUIS [Suspect]
     Active Substance: APIXABAN
     Indication: Product used for unknown indication
     Route: 048
  2. GARLIC [Concomitant]
     Active Substance: GARLIC
     Indication: Product used for unknown indication

REACTIONS (7)
  - Arthropod bite [Unknown]
  - Lyme disease [Unknown]
  - Atrial fibrillation [Unknown]
  - Hepatitis C [Unknown]
  - Impaired healing [Unknown]
  - Epistaxis [Unknown]
  - Treatment noncompliance [Unknown]
